FAERS Safety Report 5174819-6 (Version None)
Quarter: 2006Q4

REPORT INFORMATION
  Report Type: 
  Country: None (occurrence: None)
  Receive Date: 20061214
  Receipt Date: 20061211
  Transmission Date: 20070319
  Serious: Yes (Hospitalization)
  Sender: FDA-Public Use
  Company Number: NZ-MERCK-0612NZL00018

PATIENT
  Age: 89 Year
  Sex: Female

DRUGS (5)
  1. FOSAMAX [Suspect]
     Indication: PANNICULITIS
     Route: 048
  2. CELECOXIB [Suspect]
     Indication: PANNICULITIS
     Route: 048
     Dates: start: 20040303, end: 20040307
  3. PREDNISONE [Concomitant]
     Indication: POLYMYALGIA RHEUMATICA
     Route: 048
  4. QUINAPRIL HYDROCHLORIDE [Concomitant]
     Indication: HYPERTENSION
     Route: 048
  5. OMEPRAZOLE [Concomitant]
     Route: 048

REACTIONS (4)
  - DRUG INTERACTION [None]
  - HAEMATEMESIS [None]
  - INTENTIONAL DRUG MISUSE [None]
  - MELAENA [None]
